FAERS Safety Report 4466246-1 (Version None)
Quarter: 2004Q4

REPORT INFORMATION
  Report Type: 
  Country: None (occurrence: None)
  Receive Date: 20041005
  Receipt Date: 20040930
  Transmission Date: 20050328
  Serious: Yes (Hospitalization)
  Sender: FDA-Public Use
  Company Number: US-JNJFOC-20041000306

PATIENT
  Sex: Female
  Weight: 72.58 kg

DRUGS (25)
  1. INFLIXIMAB [Suspect]
     Indication: RHEUMATOID ARTHRITIS
     Route: 042
  2. PRAVACHOL [Concomitant]
  3. VIOXX [Concomitant]
  4. ENALAPRIL MALEATE [Concomitant]
  5. FOLIC ACID [Concomitant]
  6. METHOTREXATE [Concomitant]
  7. FOSAMAX [Concomitant]
  8. TRAMADOL HCL [Concomitant]
  9. CALCIUM D [Concomitant]
  10. CALCIUM D [Concomitant]
  11. CALCIUM D [Concomitant]
  12. VITAMIN E [Concomitant]
  13. MULTI-VITAMIN [Concomitant]
  14. MULTI-VITAMIN [Concomitant]
  15. MULTI-VITAMIN [Concomitant]
  16. MULTI-VITAMIN [Concomitant]
  17. MULTI-VITAMIN [Concomitant]
  18. MULTI-VITAMIN [Concomitant]
  19. MULTI-VITAMIN [Concomitant]
  20. MULTI-VITAMIN [Concomitant]
  21. GLUCOSAMINE/CHONDROITIN [Concomitant]
  22. GLUCOSAMINE/CHONDROITIN [Concomitant]
  23. GLUCOSAMINE/CHONDROITIN [Concomitant]
  24. GLUCOSAMINE/CHONDROITIN [Concomitant]
  25. ASPIRIN [Concomitant]

REACTIONS (5)
  - AORTIC VALVE INCOMPETENCE [None]
  - CAROTID ARTERY STENOSIS [None]
  - MITRAL VALVE INCOMPETENCE [None]
  - TRICUSPID VALVE INCOMPETENCE [None]
  - VISUAL ACUITY REDUCED [None]
